FAERS Safety Report 12081599 (Version 1)
Quarter: 2016Q1

REPORT INFORMATION
  Report Type: Spontaneous
  Country: CH (occurrence: CH)
  Receive Date: 20160216
  Receipt Date: 20160216
  Transmission Date: 20160526
  Serious: Yes (Hospitalization, Other)
  Sender: FDA-Public Use
  Company Number: CH-PFIZER INC-2016083959

PATIENT
  Age: 49 Year
  Sex: Female

DRUGS (6)
  1. VENLAFAXINE HCL [Suspect]
     Active Substance: VENLAFAXINE HYDROCHLORIDE
     Dosage: 300 MG, UNK
     Dates: start: 20150908
  2. VENLAFAXINE HCL [Suspect]
     Active Substance: VENLAFAXINE HYDROCHLORIDE
     Dosage: 375 MG, UNK
     Dates: start: 20150812, end: 20150819
  3. VENLAFAXINE HCL [Suspect]
     Active Substance: VENLAFAXINE HYDROCHLORIDE
     Dosage: 337.5 MG, UNK
     Dates: start: 20150826, end: 20150902
  4. QUILONORM /00033703/ [Suspect]
     Active Substance: LITHIUM ACETATE
     Dosage: 675 MG, UNK
     Dates: start: 201307, end: 20151023
  5. VENLAFAXINE HCL [Suspect]
     Active Substance: VENLAFAXINE HYDROCHLORIDE
     Dosage: 450 MG, UNK
     Dates: start: 20150819, end: 20150826
  6. VENLAFAXINE HCL [Suspect]
     Active Substance: VENLAFAXINE HYDROCHLORIDE
     Dosage: 300 MG, UNK
     Dates: start: 2010, end: 20150812

REACTIONS (7)
  - Drug ineffective [Recovered/Resolved]
  - Tremor [Recovered/Resolved]
  - Restless legs syndrome [Unknown]
  - Suicidal behaviour [Recovered/Resolved]
  - Prescribed overdose [Recovered/Resolved]
  - Initial insomnia [Unknown]
  - Hypomania [Recovered/Resolved]

NARRATIVE: CASE EVENT DATE: 201508
